FAERS Safety Report 9523319 (Version 3)
Quarter: 2015Q2

REPORT INFORMATION
  Report Type: Spontaneous
  Country: US (occurrence: US)
  Receive Date: 20130913
  Receipt Date: 20150522
  Transmission Date: 20150821
  Serious: Yes (Hospitalization, Other)
  Sender: FDA-Public Use
  Company Number: US-BAYER-2013-111119

PATIENT
  Age: 21 Year
  Sex: Female
  Weight: 78.46 kg

DRUGS (2)
  1. MIRENA [Suspect]
     Active Substance: LEVONORGESTREL
     Indication: CONTRACEPTION
     Dosage: 20 MCG/24HR, CONT
     Route: 015
     Dates: start: 20120322, end: 20121024
  2. VICODIN [Concomitant]
     Active Substance: ACETAMINOPHEN\HYDROCODONE BITARTRATE

REACTIONS (12)
  - Device issue [None]
  - Injury [None]
  - Depression [None]
  - Anxiety [None]
  - Emotional distress [None]
  - Scar [None]
  - Uterine perforation [None]
  - Pelvic inflammatory disease [None]
  - Pain [None]
  - Device failure [None]
  - Procedural pain [None]
  - Medical device discomfort [None]

NARRATIVE: CASE EVENT DATE: 20120921
